FAERS Safety Report 8553659-1 (Version None)
Quarter: 2012Q3

REPORT INFORMATION
  Report Type: 
  Country: None (occurrence: None)
  Receive Date: 20120731
  Receipt Date: 20120725
  Transmission Date: 20120928
  Serious: Yes (Other)
  Sender: FDA-Public Use
  Company Number: US-GILEAD-2012-0058827

PATIENT
  Sex: Male

DRUGS (1)
  1. TRUVADA [Suspect]
     Indication: HIV INFECTION

REACTIONS (1)
  - OSTEONECROSIS [None]
